FAERS Safety Report 6700682-5 (Version None)
Quarter: 2010Q2

REPORT INFORMATION
  Report Type: 
  Country: None (occurrence: None)
  Receive Date: 20100428
  Receipt Date: 20100423
  Transmission Date: 20101027
  Serious: Yes (Life-Threatening, Hospitalization)
  Sender: FDA-Public Use
  Company Number: PHHY2010FR25707

PATIENT
  Sex: Male

DRUGS (18)
  1. MYFORTIC [Suspect]
     Indication: PROPHYLAXIS AGAINST TRANSPLANT REJECTION
     Dosage: 1080 MG/DAY
     Dates: start: 20091024
  2. MINOCYCLINE HCL [Suspect]
     Dosage: 200 MG/DAY
     Dates: start: 20091201
  3. RIFADIN [Suspect]
     Dosage: 1200 MG/DAY
     Dates: start: 20091201
  4. PROGRAF [Suspect]
     Dosage: UNK
     Dates: start: 20090701, end: 20100408
  5. MOPRAL [Suspect]
     Dosage: 20 MG/DAY
     Dates: start: 20100408
  6. SECTRAL [Suspect]
  7. CELLCEPT [Suspect]
  8. FUNGIZONE [Concomitant]
     Dosage: 2 G/DAY
  9. CORTANCYL [Concomitant]
     Dosage: 10 MG/DAY
  10. MOTILIUM [Concomitant]
  11. UN-ALFA [Concomitant]
  12. CACIT D3 [Concomitant]
  13. ROVALCYTE [Concomitant]
  14. SPECIAFOLDINE [Concomitant]
  15. FUMAFER [Concomitant]
  16. NEORECORMON [Concomitant]
  17. MABTHERA [Concomitant]
  18. AMLOR [Concomitant]
     Dosage: 10 MG/DAY

REACTIONS (14)
  - ABDOMINAL PAIN UPPER [None]
  - BACK PAIN [None]
  - BLOOD CREATININE INCREASED [None]
  - BLOOD PRESSURE DECREASED [None]
  - CANDIDIASIS [None]
  - COUGH [None]
  - GENERAL PHYSICAL HEALTH DETERIORATION [None]
  - HYPONATRAEMIA [None]
  - LIPASE INCREASED [None]
  - MUSCULOSKELETAL CHEST PAIN [None]
  - PANCREATITIS NECROTISING [None]
  - PROTEINURIA [None]
  - RHODOCOCCUS INFECTION [None]
  - TACHYCARDIA [None]
